FAERS Safety Report 18544634 (Version 1)
Quarter: 2020Q4

REPORT INFORMATION
  Report Type: Spontaneous
  Country: GB (occurrence: GB)
  Receive Date: 20201124
  Receipt Date: 20201124
  Transmission Date: 20210114
  Serious: Yes (Disabling)
  Sender: FDA-Public Use
  Company Number: None

PATIENT
  Age: 50 Year
  Sex: Female
  Weight: 65 kg

DRUGS (5)
  1. VENTOLIN [Concomitant]
     Active Substance: ALBUTEROL SULFATE
  2. RANITIDINE. [Suspect]
     Active Substance: RANITIDINE
     Indication: URTICARIA CHRONIC
     Route: 048
     Dates: start: 20121009
  3. CIMETIDINE (RANITIDINE ALTERNATIVE) [Concomitant]
  4. FULTIUM VITAMIN D [Concomitant]
  5. XYZAL [Concomitant]
     Active Substance: LEVOCETIRIZINE DIHYDROCHLORIDE

REACTIONS (1)
  - Heart rate irregular [None]

NARRATIVE: CASE EVENT DATE: 20170101
